FAERS Safety Report 6761192-2 (Version None)
Quarter: 2010Q2

REPORT INFORMATION
  Report Type: 
  Country: None (occurrence: None)
  Receive Date: 20100602
  Receipt Date: 20080422
  Transmission Date: 20101027
  Serious: No
  Sender: FDA-Public Use
  Company Number: 2008-00066

PATIENT
  Age: 48 Year
  Sex: Female
  Weight: 56.6996 kg

DRUGS (2)
  1. ZICAM COLD REMEDY GEL SWABS [Suspect]
     Dosage: BID X 7 DAYS
     Dates: start: 20080220, end: 20080227
  2. ZICAM COLD REMEDY NASAL GEL [Suspect]
     Dosage: TID X 4 DAYS
     Dates: start: 20080228, end: 20080302

REACTIONS (2)
  - AGEUSIA [None]
  - ANOSMIA [None]
